FAERS Safety Report 13882864 (Version 3)
Quarter: 2018Q4

REPORT INFORMATION
  Report Type: Spontaneous
  Country: US (occurrence: US)
  Receive Date: 20170818
  Receipt Date: 20181015
  Transmission Date: 20190204
  Serious: Yes (Other)
  Sender: FDA-Public Use
  Company Number: US-PFIZER INC-2017355148

PATIENT
  Age: 66 Year
  Sex: Female
  Weight: 108.8 kg

DRUGS (5)
  1. POTASSIUM [Concomitant]
     Active Substance: POTASSIUM
     Indication: SLEEP DISORDER
     Dosage: UNK  (2 POTASSIUM)
     Dates: end: 201707
  2. LETROZOLE. [Suspect]
     Active Substance: LETROZOLE
     Indication: BREAST CANCER METASTATIC
     Dosage: UNK
     Route: 048
  3. IBRANCE [Suspect]
     Active Substance: PALBOCICLIB
     Indication: BREAST CANCER METASTATIC
     Dosage: 125 MG, (FOR 3 WEEKS)
     Dates: start: 20170106
  4. IBRANCE [Suspect]
     Active Substance: PALBOCICLIB
     Dosage: 100 MG, UNK
  5. MAGNESIUM [Concomitant]
     Active Substance: MAGNESIUM
     Indication: SLEEP DISORDER
     Dosage: UNK (3 TO HELP SLEEP)
     Dates: end: 201707

REACTIONS (2)
  - Alopecia [Not Recovered/Not Resolved]
  - White blood cell count decreased [Recovering/Resolving]

NARRATIVE: CASE EVENT DATE: 2017
